FAERS Safety Report 16498807 (Version 1)
Quarter: 2019Q2

REPORT INFORMATION
  Report Type: Report from Study
  Country: LB (occurrence: LB)
  Receive Date: 20190630
  Receipt Date: 20190630
  Transmission Date: 20190711
  Serious: Yes (Death, Hospitalization, Other)
  Sender: FDA-Public Use
  Company Number: LB-JNJFOC-20190618766

PATIENT
  Age: 88 Year
  Sex: Male

DRUGS (2)
  1. ABIRATERONE ACETATE. [Suspect]
     Active Substance: ABIRATERONE ACETATE
     Route: 048
     Dates: end: 20190430
  2. ABIRATERONE ACETATE. [Suspect]
     Active Substance: ABIRATERONE ACETATE
     Indication: PROSTATE CANCER
     Route: 048
     Dates: start: 201805

REACTIONS (5)
  - Relapsing fever [Unknown]
  - Prostate cancer metastatic [Unknown]
  - Drug ineffective [Unknown]
  - Death [Fatal]
  - Decreased appetite [Unknown]
